FAERS Safety Report 7515354-7 (Version None)
Quarter: 2011Q2

REPORT INFORMATION
  Report Type: 
  Country: None (occurrence: None)
  Receive Date: 20110601
  Receipt Date: 20100615
  Transmission Date: 20111010
  Serious: No
  Sender: FDA-Public Use
  Company Number: US-PFIZER INC-2010075575

PATIENT
  Sex: Female
  Weight: 57.596 kg

DRUGS (9)
  1. ZINC [Concomitant]
     Dosage: UNK
  2. IMIPRAMINE [Concomitant]
     Indication: HYPERTONIC BLADDER
     Dosage: UNK
  3. ACETYLSALICYLIC ACID [Concomitant]
     Dosage: UNK
  4. IRON SULFATETHIAMIN COMPOUND TAB [Concomitant]
     Dosage: UNK
  5. CHANTIX [Suspect]
     Indication: SMOKING CESSATION THERAPY
     Dosage: 0.5 MG, 1X/DAY
     Dates: start: 20100603
  6. CRESTOR [Concomitant]
     Indication: DYSLIPIDAEMIA
     Dosage: UNK
  7. CHANTIX [Suspect]
     Dosage: 1 MG, 2X/DAY
  8. CYMBALTA [Concomitant]
     Indication: FIBROMYALGIA
     Dosage: UNK
  9. FISH OIL [Concomitant]
     Dosage: UNK

REACTIONS (5)
  - TOOTHACHE [None]
  - HEADACHE [None]
  - NAUSEA [None]
  - DYSPEPSIA [None]
  - VOMITING [None]
